FAERS Safety Report 4915965-9 (Version None)
Quarter: 2006Q1

REPORT INFORMATION
  Report Type: 
  Country: None (occurrence: None)
  Receive Date: 20060214
  Receipt Date: 20060125
  Transmission Date: 20060701
  Serious: Yes (Hospitalization, Other)
  Sender: FDA-Public Use
  Company Number: US_0507119863

PATIENT
  Age: 49 Year
  Sex: Female
  Weight: 125.6 kg

DRUGS (27)
  1. ZYPREXA [Suspect]
     Indication: PSYCHOTIC DISORDER
     Dosage: SEE IMAGE
     Dates: start: 20040602, end: 20040627
  2. ZYPREXA [Suspect]
     Indication: PSYCHOTIC DISORDER
     Dosage: SEE IMAGE
     Dates: start: 20020101
  3. TRICOR [Concomitant]
  4. PROTONIX [Concomitant]
  5. HYDROXYZINE PAMOATE [Concomitant]
  6. ALTACE [Concomitant]
  7. MIRTAZAPINE [Concomitant]
  8. DOXEPIN HCL [Concomitant]
  9. LIPITOR [Concomitant]
  10. DIAZEPAM [Concomitant]
  11. SEROQUEL                   /UNK/ (QUETIAPINE FUMARATE) [Concomitant]
  12. AMBIEN [Concomitant]
  13. AUGMENTIN /UNK/ (AMOXICILLIN TRIHYDRATE, CLAVULANATE POTASSIUM) [Concomitant]
  14. CLONAZEPAM [Concomitant]
  15. FLUOXETINE HYDROCHLORIDE (FLUOXETINE HYDROCHLORIDE UNKNOWN FORMULATION [Concomitant]
  16. IMIPRAMINE [Concomitant]
  17. PREMARIN [Concomitant]
  18. HALOPERIDOL [Concomitant]
  19. QUININE SULFATE (QUININE SULFATE UNKNOWN FORMULATION) [Concomitant]
  20. EFFEXOR XR [Concomitant]
  21. DEPAKOTE - SLOW RELEASE (VALPROATE SEMISODIUM) [Concomitant]
  22. ABILIFY [Concomitant]
  23. INDERAL [Concomitant]
  24. ZOCOR [Concomitant]
  25. WELLBUTRIN [Concomitant]
  26. ATIVAN [Concomitant]
  27. LOPID [Concomitant]

REACTIONS (17)
  - ABDOMINAL PAIN UPPER [None]
  - BLOOD GLUCOSE INCREASED [None]
  - BLOOD TRIGLYCERIDES INCREASED [None]
  - CELLULITIS [None]
  - DEHYDRATION [None]
  - DIABETES MELLITUS [None]
  - DIABETIC ULCER [None]
  - DRY MOUTH [None]
  - DYSURIA [None]
  - FLANK PAIN [None]
  - NAUSEA [None]
  - NOCTURIA [None]
  - OPEN WOUND [None]
  - SKIN NECROSIS [None]
  - URINARY TRACT INFECTION [None]
  - VOMITING [None]
  - WEIGHT INCREASED [None]
